FAERS Safety Report 11219929 (Version 1)
Quarter: 2015Q2

REPORT INFORMATION
  Report Type: Spontaneous
  Country: FR (occurrence: FR)
  Receive Date: 20150625
  Receipt Date: 20150625
  Transmission Date: 20150821
  Serious: Yes (Hospitalization)
  Sender: FDA-Public Use
  Company Number: FR-DSJP-DSE-2015-119454

PATIENT

DRUGS (9)
  1. COOLMETEC [Suspect]
     Active Substance: HYDROCHLOROTHIAZIDE\OLMESARTAN MEDOXOMIL
     Indication: FOETAL EXPOSURE DURING PREGNANCY
     Dosage: UNK
     Route: 064
     Dates: start: 201309, end: 20131217
  2. LOXEN                              /00639802/ [Concomitant]
     Active Substance: NICARDIPINE
     Indication: FOETAL EXPOSURE DURING PREGNANCY
     Dosage: 50 MG, BID
     Route: 064
     Dates: start: 20131217, end: 20140531
  3. 1-ALPHA [Concomitant]
     Active Substance: ALFACALCIDOL
     Indication: FOETAL EXPOSURE DURING PREGNANCY
     Dosage: 0.5 , QD
     Route: 064
     Dates: start: 201509, end: 20140531
  4. LEVOTHYROX [Concomitant]
     Active Substance: LEVOTHYROXINE
     Indication: FOETAL EXPOSURE DURING PREGNANCY
     Dosage: 100 ?G, QD
     Route: 064
     Dates: start: 201309, end: 2013
  5. LEVOTHYROX [Concomitant]
     Active Substance: LEVOTHYROXINE
     Dosage: 150 ?G, QD
     Route: 064
     Dates: start: 2013, end: 20140531
  6. CYNOMEL [Concomitant]
     Indication: FOETAL EXPOSURE DURING PREGNANCY
     Dosage: UNK
     Route: 064
     Dates: start: 201401
  7. L-THYROXINE                        /00068001/ [Concomitant]
     Active Substance: LEVOTHYROXINE
     Indication: FOETAL EXPOSURE DURING PREGNANCY
     Dosage: UNK
     Route: 064
     Dates: start: 201401
  8. OSTRAM                             /00183801/ [Concomitant]
     Indication: FOETAL EXPOSURE DURING PREGNANCY
     Dosage: UNK
     Route: 064
     Dates: start: 201309, end: 20140531
  9. ALDOMET [Concomitant]
     Active Substance: METHYLDOPA
     Indication: FOETAL EXPOSURE DURING PREGNANCY
     Dosage: 250 MG, BID
     Route: 064
     Dates: start: 20140108, end: 20140531

REACTIONS (5)
  - Jaundice [Recovered/Resolved]
  - Hyponatraemia [Recovered/Resolved]
  - Foetal arrhythmia [Recovered/Resolved]
  - Neonatal disorder [Recovered/Resolved]
  - Hypocalcaemia [Recovered/Resolved]

NARRATIVE: CASE EVENT DATE: 20140601
